FAERS Safety Report 24704823 (Version 1)
Quarter: 2024Q4

REPORT INFORMATION
  Report Type: Spontaneous
  Country: US (occurrence: US)
  Receive Date: 20241206
  Receipt Date: 20241206
  Transmission Date: 20250115
  Serious: No
  Sender: VIIV
  Company Number: US-VIIV HEALTHCARE-US2024AMR146296

PATIENT
  Sex: Female

DRUGS (3)
  1. CABENUVA [Suspect]
     Active Substance: CABOTEGRAVIR\RILPIVIRINE
     Indication: Product used for unknown indication
     Dosage: UNK
  2. CABENUVA [Suspect]
     Active Substance: CABOTEGRAVIR\RILPIVIRINE
  3. CABENUVA [Suspect]
     Active Substance: CABOTEGRAVIR\RILPIVIRINE

REACTIONS (8)
  - Injection site discomfort [Unknown]
  - Injection site warmth [Unknown]
  - Influenza like illness [Unknown]
  - Insomnia [Unknown]
  - Weight increased [Unknown]
  - Injection site induration [Unknown]
  - Pain [Recovered/Resolved]
  - Chills [Recovered/Resolved]
